FAERS Safety Report 18548566 (Version 3)
Quarter: 2021Q1

REPORT INFORMATION
  Report Type: Report from Study
  Country: ES (occurrence: ES)
  Receive Date: 20201125
  Receipt Date: 20210318
  Transmission Date: 20210419
  Serious: Yes (Death)
  Sender: FDA-Public Use
  Company Number: ES-EXELIXIS-XL18420035261

PATIENT
  Age: 39 Year
  Sex: Male
  Weight: 81.5 kg

DRUGS (4)
  1. ATEZOLIZUMAB. [Suspect]
     Active Substance: ATEZOLIZUMAB
     Indication: NON-SMALL CELL LUNG CANCER
     Dosage: 1200 MG, Q3WEEKS
     Route: 042
     Dates: start: 20200522, end: 20200925
  2. PARACETAMOL [Concomitant]
     Active Substance: ACETAMINOPHEN
  3. XL184 [Suspect]
     Active Substance: CABOZANTINIB
     Indication: NON-SMALL CELL LUNG CANCER
     Dosage: 40 MG, QD
     Route: 048
     Dates: start: 20200522
  4. LEVETIRACETAM. [Concomitant]
     Active Substance: LEVETIRACETAM

REACTIONS (2)
  - Hyperthyroidism [Recovered/Resolved]
  - Malignant neoplasm progression [Fatal]

NARRATIVE: CASE EVENT DATE: 20200902
